FAERS Safety Report 9752455 (Version 2)
Quarter: 2014Q1

REPORT INFORMATION
  Report Type: Spontaneous
  Country: GB (occurrence: None)
  Receive Date: 20131211
  Receipt Date: 20140314
  Transmission Date: 20141002
  Serious: Yes (Other)
  Sender: FDA-Public Use
  Company Number: AUR-APL-2013-10193

PATIENT
  Age: 49 Year
  Sex: Male

DRUGS (2)
  1. SERTRALINE [Suspect]
     Indication: DEPRESSION
     Route: 048
     Dates: start: 200703
  2. OLANZAPINE (OLANZAPINE) [Concomitant]

REACTIONS (3)
  - Alopecia [None]
  - Hair growth abnormal [None]
  - Hair colour changes [None]
